FAERS Safety Report 7425704-8 (Version None)
Quarter: 2011Q2

REPORT INFORMATION
  Report Type: 
  Country: None (occurrence: None)
  Receive Date: 20110420
  Receipt Date: 20110406
  Transmission Date: 20111010
  Serious: Yes (Hospitalization, Other)
  Sender: FDA-Public Use
  Company Number: US-ELI_LILLY_AND_COMPANY-US201102003032

PATIENT
  Sex: Female

DRUGS (10)
  1. XALATAN [Concomitant]
  2. FORTEO [Suspect]
     Dosage: 20 UG, QD
  3. ACTONEL [Concomitant]
  4. ICAPS [Concomitant]
  5. MULTI-VITAMIN [Concomitant]
  6. FORTEO [Suspect]
     Indication: OSTEOPOROSIS
     Dosage: 20 UG, DAILY (1/D)
     Dates: start: 20110201
  7. METOPROLOL [Concomitant]
  8. CALCIUM [Concomitant]
  9. ASPIRIN [Concomitant]
  10. FISH OIL [Concomitant]

REACTIONS (3)
  - FALL [None]
  - PELVIC FRACTURE [None]
  - INJECTION SITE PRURITUS [None]
